FAERS Safety Report 8525618-6 (Version None)
Quarter: 2012Q3

REPORT INFORMATION
  Report Type: 
  Country: None (occurrence: None)
  Receive Date: 20120710
  Receipt Date: 20120628
  Transmission Date: 20120928
  Serious: Yes (Other)
  Sender: FDA-Public Use
  Company Number: 2012MA007308

PATIENT
  Age: 67 Year
  Sex: Male

DRUGS (2)
  1. FLOXACILLIN SODIUM [Suspect]
     Indication: ABSCESS LIMB
     Dosage: 500 MG; ;PO
     Route: 048
     Dates: start: 20120427, end: 20120512
  2. IBUPROFEN [Suspect]
     Indication: ABSCESS LIMB
     Dosage: 200 MG;	;PO
     Route: 048
     Dates: start: 20120427, end: 20120503

REACTIONS (1)
  - RENAL FAILURE ACUTE [None]
